FAERS Safety Report 13988678 (Version 1)
Quarter: 2017Q3

REPORT INFORMATION
  Report Type: Spontaneous
  Country: US (occurrence: US)
  Receive Date: 20170919
  Receipt Date: 20170919
  Transmission Date: 20171128
  Serious: No
  Sender: FDA-Public Use
  Company Number: US-AMNEAL PHARMACEUTICALS-2017AMN00665

PATIENT
  Age: 61 Year
  Sex: Female
  Weight: 117.91 kg

DRUGS (4)
  1. DIVALPROEX [Concomitant]
     Active Substance: DIVALPROEX SODIUM
     Indication: BIPOLAR DISORDER
     Dosage: 500 MG, 1X/DAY FOR ABOUT 15 YEARS
     Route: 048
  2. AMLODIPINE BESYLATE. [Concomitant]
     Active Substance: AMLODIPINE BESYLATE
     Indication: HYPERTENSION
     Dosage: 100 MG, 1X/DAY (USING SINCE A YEAR)
     Route: 048
  3. GABAPENTIN. [Suspect]
     Active Substance: GABAPENTIN
     Indication: FIBROMYALGIA
     Dosage: 2 CAPSULES, 3X/DAY
     Route: 048
     Dates: start: 201704
  4. EFFEXOR XR EXTENDED-RELEASE [Concomitant]
     Active Substance: VENLAFAXINE HYDROCHLORIDE
     Indication: BIPOLAR DISORDER
     Dosage: 150 MG, 1X/DAY FRO ABOUT 15 YEARS
     Route: 048

REACTIONS (1)
  - Drug ineffective [Unknown]

NARRATIVE: CASE EVENT DATE: 201704
